FAERS Safety Report 7983445-2 (Version None)
Quarter: 2011Q4

REPORT INFORMATION
  Report Type: 
  Country: None (occurrence: None)
  Receive Date: 20111215
  Receipt Date: 20111012
  Transmission Date: 20120403
  Serious: No
  Sender: FDA-Public Use
  Company Number: US-BAYER-2011-098685

PATIENT
  Age: 29 Year
  Sex: Female

DRUGS (1)
  1. FINACEA [Suspect]
     Indication: ROSACEA
     Dosage: UNK, ONCE
     Route: 061
     Dates: start: 20111006

REACTIONS (3)
  - BURNING SENSATION [None]
  - URTICARIA [None]
  - OEDEMA [None]
